FAERS Safety Report 19485722 (Version 2)
Quarter: 2022Q4

REPORT INFORMATION
  Report Type: Spontaneous
  Country: US (occurrence: US)
  Receive Date: 20210702
  Receipt Date: 20221025
  Transmission Date: 20230113
  Serious: No
  Sender: FDA-Public Use
  Company Number: US-SA-SAC20210701000432

PATIENT
  Age: 61 Year
  Sex: Female

DRUGS (1)
  1. KEVZARA [Suspect]
     Active Substance: SARILUMAB
     Indication: Rheumatoid arthritis
     Dosage: 200 MG, QOW
     Route: 058
     Dates: start: 20201104

REACTIONS (7)
  - Ocular hyperaemia [Unknown]
  - Blood glucose abnormal [Unknown]
  - COVID-19 [Unknown]
  - Anxiety [Unknown]
  - Insomnia [Unknown]
  - Nervousness [Unknown]
  - Blood glucose increased [Unknown]

NARRATIVE: CASE EVENT DATE: 20210401
